FAERS Safety Report 8834238 (Version 1)
Quarter: 2012Q4

REPORT INFORMATION
  Report Type: 
  Country: US (occurrence: US)
  Receive Date: 20121010
  Receipt Date: 20121010
  Transmission Date: 20130627
  Serious: No
  Sender: FDA-Public Use
  Company Number: US-ASTRAZENECA-2012SE75334

PATIENT
  Age: 55 Year
  Sex: Female
  Weight: 58.5 kg

DRUGS (11)
  1. SEROQUEL XR [Suspect]
     Indication: BIPOLAR DISORDER
     Route: 048
     Dates: start: 20120920, end: 20120924
  2. METOPROLOL [Suspect]
     Indication: BLOOD PRESSURE
     Route: 048
  3. METHOTREXATE [Concomitant]
     Indication: RHEUMATOID ARTHRITIS
  4. LEVOTHYROXINE [Concomitant]
     Indication: THYROID DISORDER
  5. BENAZEPRIL [Concomitant]
     Indication: BLOOD PRESSURE
  6. MOBIC [Concomitant]
     Indication: RHEUMATOID ARTHRITIS
  7. FOLIC ACID [Concomitant]
     Indication: ARTHRITIS
  8. ASPIRIN [Concomitant]
     Indication: ARTHRITIS
  9. NORVASC [Concomitant]
     Indication: BLOOD PRESSURE
  10. EVISTA [Concomitant]
     Indication: BONE DISORDER
  11. CIMZIA [Concomitant]
     Indication: ARTHRITIS

REACTIONS (8)
  - Impaired work ability [Not Recovered/Not Resolved]
  - Insomnia [Not Recovered/Not Resolved]
  - Increased appetite [Not Recovered/Not Resolved]
  - Somnolence [Recovered/Resolved]
  - Somnolence [Recovered/Resolved]
  - Somnolence [Unknown]
  - Drug dose omission [Unknown]
  - Off label use [Unknown]
